FAERS Safety Report 5876483-7 (Version None)
Quarter: 2008Q3

REPORT INFORMATION
  Report Type: 
  Country: None (occurrence: None)
  Receive Date: 20080910
  Receipt Date: 20080905
  Transmission Date: 20090109
  Serious: Yes (Life-Threatening, Hospitalization, Disabling, Other)
  Sender: FDA-Public Use
  Company Number: A0746127A

PATIENT
  Age: 15 Year
  Sex: Female

DRUGS (5)
  1. ZIAGEN [Suspect]
     Indication: HIV INFECTION
     Dosage: 300MG TWICE PER DAY
     Route: 048
     Dates: start: 20010101
  2. SUSTIVA [Concomitant]
  3. KALETRA [Concomitant]
  4. POLYVITAMINS [Concomitant]
  5. ENTERAL NUTRITION [Concomitant]

REACTIONS (6)
  - ABDOMINAL ADHESIONS [None]
  - HYPERSENSITIVITY [None]
  - ILEUS [None]
  - PERITONITIS [None]
  - SMALL INTESTINAL PERFORATION [None]
  - VOMITING [None]
